FAERS Safety Report 9366430 (Version 3)
Quarter: 2013Q3

REPORT INFORMATION
  Report Type: Spontaneous
  Country: US (occurrence: US)
  Receive Date: 20130625
  Receipt Date: 20130712
  Transmission Date: 20140515
  Serious: Yes (Other)
  Sender: FDA-Public Use
  Company Number: US-PFIZER INC-2013184997

PATIENT
  Age: 58 Year
  Sex: Female
  Weight: 68.03 kg

DRUGS (4)
  1. LIPITOR [Suspect]
     Dosage: 40 MG, DAILY
  2. LIPITOR [Suspect]
     Dosage: 80 MG, DAILY
  3. ATENOLOL [Concomitant]
     Indication: HYPERTENSION
     Dosage: 50 MG, DAILY
  4. LANTUS [Concomitant]
     Indication: DIABETES MELLITUS
     Dosage: 25 MG, 2X/DAY

REACTIONS (1)
  - Cerebrovascular accident [Unknown]
